FAERS Safety Report 21242009 (Version 1)
Quarter: 2022Q3

REPORT INFORMATION
  Report Type: Spontaneous
  Country: FR (occurrence: FR)
  Receive Date: 20220823
  Receipt Date: 20220823
  Transmission Date: 20221027
  Serious: Yes (Hospitalization, Other)
  Sender: FDA-Public Use
  Company Number: FR-UCBSA-2022048984

PATIENT
  Age: 49 Year
  Sex: Female
  Weight: 43 kg

DRUGS (2)
  1. KEPPRA [Suspect]
     Active Substance: LEVETIRACETAM
     Indication: Product used for unknown indication
     Dosage: UNK
  2. AVELUMAB [Suspect]
     Active Substance: AVELUMAB
     Indication: Cervix carcinoma
     Dosage: 800 MILLIGRAM, EVERY 1 CYCLE
     Route: 042
     Dates: start: 20220531, end: 20220726

REACTIONS (7)
  - Suicide attempt [Unknown]
  - Cardio-respiratory arrest [Recovered/Resolved]
  - Acute kidney injury [Unknown]
  - Intestinal ischaemia [Unknown]
  - Colectomy total [Unknown]
  - Small intestinal resection [Unknown]
  - Arrhythmia [Unknown]

NARRATIVE: CASE EVENT DATE: 20220729
